FAERS Safety Report 17791546 (Version 1)
Quarter: 2020Q2

REPORT INFORMATION
  Report Type: Spontaneous
  Country: SG (occurrence: SG)
  Receive Date: 20200515
  Receipt Date: 20200515
  Transmission Date: 20200714
  Serious: Yes (Hospitalization)
  Sender: FDA-Public Use
  Company Number: SG-MYLANLABS-2020M1047685

PATIENT
  Age: 80 Year
  Sex: Female

DRUGS (6)
  1. COLCHICINE. [Interacting]
     Active Substance: COLCHICINE
     Indication: GOUT
     Dosage: 500 MICROGRAM, BID, AS REQUIRED(PRN)
     Route: 065
  2. TELMISARTAN. [Interacting]
     Active Substance: TELMISARTAN
     Indication: HYPERTENSION
     Dosage: 40 MILLIGRAM, EVERY MORNING
     Route: 065
  3. ALLOPURINOL. [Concomitant]
     Active Substance: ALLOPURINOL
     Indication: GOUT
     Dosage: 150 MILLIGRAM, EVERY MORNING
     Route: 065
  4. CLOPIDOGREL [Concomitant]
     Active Substance: CLOPIDOGREL BISULFATE
     Indication: PRODUCT USED FOR UNKNOWN INDICATION
     Dosage: 75 MILLIGRAM, EVERY MORNING
     Route: 065
  5. OMEPRAZOLE. [Suspect]
     Active Substance: OMEPRAZOLE
     Indication: PRODUCT USED FOR UNKNOWN INDICATION
     Dosage: 20 MILLIGRAM, EVERY MORNING
     Route: 065
  6. COLCHICINE. [Interacting]
     Active Substance: COLCHICINE
     Dosage: 500 MICROGRAM RECEIVING THREE TIMES A DAY SINCE THE PAST MONTH AS PER HER FAMILY PHYSICIAN^S
     Route: 065

REACTIONS (10)
  - Fall [Recovered/Resolved]
  - Dysstasia [Recovered/Resolved]
  - Loss of personal independence in daily activities [Recovered/Resolved]
  - Myopathy toxic [Recovered/Resolved]
  - Vomiting [Recovered/Resolved]
  - Diarrhoea [Recovered/Resolved]
  - Muscular weakness [Recovered/Resolved]
  - Drug interaction [Recovered/Resolved]
  - Myotonia [Recovered/Resolved]
  - Transaminases increased [Recovered/Resolved]
